FAERS Safety Report 20658050 (Version 1)
Quarter: 2022Q1

REPORT INFORMATION
  Report Type: Spontaneous
  Country: US (occurrence: US)
  Receive Date: 20220331
  Receipt Date: 20220331
  Transmission Date: 20220423
  Serious: Yes (Life-Threatening, Hospitalization)
  Sender: FDA-Public Use
  Company Number: US-MYLANLABS-2022M1023566

PATIENT
  Age: 11 Year
  Sex: Female

DRUGS (6)
  1. AZITHROMYCIN [Suspect]
     Active Substance: AZITHROMYCIN
     Indication: Myocarditis infectious
     Dosage: 10 MILLIGRAM/KILOGRAM (10 MG/KG/DOSE OVER 60 MINUTES)
     Route: 042
  2. AZITHROMYCIN [Suspect]
     Active Substance: AZITHROMYCIN
     Indication: Mycoplasma infection
  3. FUROSEMIDE [Concomitant]
     Active Substance: FUROSEMIDE
     Indication: Dilatation ventricular
     Dosage: UNK (INFUSION)
  4. MILRINONE [Concomitant]
     Active Substance: MILRINONE
     Indication: Dilatation ventricular
     Dosage: UNK (INFUSION)
  5. EPINEPHRINE [Concomitant]
     Active Substance: EPINEPHRINE
     Indication: Dilatation ventricular
     Dosage: UNK (INFUSION)
  6. NITROPRUSSIDE [Concomitant]
     Active Substance: NITROPRUSSIDE
     Indication: Dilatation ventricular
     Dosage: UNK
     Route: 065

REACTIONS (2)
  - Hypotension [Recovering/Resolving]
  - Cardiac arrest [Recovered/Resolved]
